FAERS Safety Report 19175049 (Version 1)
Quarter: 2021Q2

REPORT INFORMATION
  Report Type: Report from Study
  Country: US (occurrence: US)
  Receive Date: 20210423
  Receipt Date: 20210423
  Transmission Date: 20210717
  Serious: Yes (Hospitalization)
  Sender: FDA-Public Use
  Company Number: US-GILEAD-2021-0525485

PATIENT
  Sex: Female

DRUGS (23)
  1. URSODIOL. [Concomitant]
     Active Substance: URSODIOL
  2. MEROPENEM. [Concomitant]
     Active Substance: MEROPENEM
  3. HYPERSAL [Concomitant]
     Active Substance: SODIUM CHLORIDE
  4. CREON [Concomitant]
     Active Substance: PANCRELIPASE AMYLASE\PANCRELIPASE LIPASE\PANCRELIPASE PROTEASE
  5. CYCLOBENZAPRINE HYDROCHLORIDE. [Concomitant]
     Active Substance: CYCLOBENZAPRINE HYDROCHLORIDE
  6. MAGNESIUM [Concomitant]
     Active Substance: MAGNESIUM
  7. DAILY MULTIVITAMIN [Concomitant]
     Active Substance: VITAMINS
  8. AZITHROMYCIN ANHYDROUS. [Concomitant]
     Active Substance: AZITHROMYCIN ANHYDROUS
  9. TRIKAFTA [Concomitant]
     Active Substance: ELEXACAFTOR\IVACAFTOR\TEZACAFTOR
  10. VENTOLIN [Concomitant]
     Active Substance: ALBUTEROL SULFATE
  11. LORAZEPAM. [Concomitant]
     Active Substance: LORAZEPAM
  12. PREDNISONE. [Concomitant]
     Active Substance: PREDNISONE
  13. VITAMIN D3 [Concomitant]
     Active Substance: CHOLECALCIFEROL
  14. AZTREONAM LYSINE [Suspect]
     Active Substance: AZTREONAM LYSINE
     Indication: CYSTIC FIBROSIS
     Dosage: 75 MG, TID, EVERY 28 DAYS ON AND 28 DAYS OFF
     Route: 055
  15. CORLANOR [Concomitant]
     Active Substance: IVABRADINE HYDROCHLORIDE
  16. ZYRTEC [Concomitant]
     Active Substance: CETIRIZINE HYDROCHLORIDE
  17. COMBIVENT [Concomitant]
     Active Substance: ALBUTEROL SULFATE\IPRATROPIUM BROMIDE
  18. CALCIUM [Concomitant]
     Active Substance: CALCIUM
  19. TOBI [Concomitant]
     Active Substance: TOBRAMYCIN
  20. ACETYLCYSTEINE. [Concomitant]
     Active Substance: ACETYLCYSTEINE
  21. BUDESONIDE. [Concomitant]
     Active Substance: BUDESONIDE
  22. ALPRAZOLAM. [Concomitant]
     Active Substance: ALPRAZOLAM
  23. IPRATROPIUM/ALBUTEROL [Concomitant]
     Active Substance: ALBUTEROL\IPRATROPIUM

REACTIONS (2)
  - Upper limb fracture [Not Recovered/Not Resolved]
  - COVID-19 [Not Recovered/Not Resolved]
